FAERS Safety Report 7820823-6 (Version None)
Quarter: 2011Q4

REPORT INFORMATION
  Report Type: 
  Country: None (occurrence: None)
  Receive Date: 20111018
  Receipt Date: 20111011
  Transmission Date: 20120403
  Serious: Yes (Life-Threatening, Hospitalization, Other)
  Sender: FDA-Public Use
  Company Number: AT-ELI_LILLY_AND_COMPANY-AT201109008543

PATIENT
  Sex: Male

DRUGS (13)
  1. LOVENOX [Concomitant]
     Dosage: 40 DF, BID
     Dates: end: 20110923
  2. DANCOR [Concomitant]
     Dosage: 20 MG, BID
  3. DOBUTREX [Concomitant]
     Route: 042
  4. EFFIENT [Suspect]
     Dosage: 10 MG, QD
     Route: 048
     Dates: end: 20110923
  5. SIMVASTATIN [Concomitant]
     Dosage: 40 DF, QD
     Route: 048
  6. PANTOLOC                           /01263202/ [Concomitant]
     Dosage: 20 DF, QD
  7. RAMIPRIL [Concomitant]
     Dosage: 2.5 DF, QD
  8. ATORVASTATIN CALCIUM [Concomitant]
     Dosage: 80 DF, QD
     Route: 048
  9. ANALGESICS [Concomitant]
     Route: 042
  10. NORADRENALIN                       /00127501/ [Concomitant]
     Route: 042
  11. NOMEXOR [Concomitant]
     Dosage: 5 DF, UNK
     Route: 048
  12. NICORETTE [Concomitant]
     Dosage: UNK, QD
     Route: 048
  13. ASPIRIN [Concomitant]
     Dosage: UNK
     Dates: end: 20110923

REACTIONS (4)
  - ATRIAL FIBRILLATION [None]
  - THORACIC HAEMORRHAGE [None]
  - WOUND INFECTION [None]
  - HAEMORRHAGE [None]
